FAERS Safety Report 12929888 (Version 1)
Quarter: 2016Q4

REPORT INFORMATION
  Report Type: Spontaneous
  Country: US (occurrence: US)
  Receive Date: 20161110
  Receipt Date: 20161110
  Transmission Date: 20170207
  Serious: Yes (Hospitalization)
  Sender: FDA-Public Use
  Company Number: None

PATIENT
  Age: 71 Year
  Sex: Male
  Weight: 136.3 kg

DRUGS (1)
  1. CETUXIMAB [Suspect]
     Active Substance: CETUXIMAB
     Indication: HEAD AND NECK CANCER
     Dates: start: 20161012, end: 20161019

REACTIONS (4)
  - Rash [None]
  - Fatigue [None]
  - Swelling face [None]
  - Blood potassium decreased [None]

NARRATIVE: CASE EVENT DATE: 20161109
